FAERS Safety Report 5152311-2 (Version None)
Quarter: 2006Q4

REPORT INFORMATION
  Report Type: 
  Country: None (occurrence: None)
  Receive Date: 20061116
  Receipt Date: 20061107
  Transmission Date: 20070319
  Serious: Yes (Hospitalization)
  Sender: FDA-Public Use
  Company Number: GB-ROCHE-470194

PATIENT
  Age: 38 Year
  Sex: Female
  Weight: 98 kg

DRUGS (1)
  1. XENICAL [Suspect]
     Indication: OBESITY
     Route: 048
     Dates: start: 20061025, end: 20061102

REACTIONS (2)
  - DYSPNOEA [None]
  - SWELLING FACE [None]
